FAERS Safety Report 14789363 (Version 6)
Quarter: 2019Q2

REPORT INFORMATION
  Report Type: Spontaneous
  Country: ES (occurrence: ES)
  Receive Date: 20180423
  Receipt Date: 20190402
  Transmission Date: 20190711
  Serious: Yes (Hospitalization, Other)
  Sender: FDA-Public Use
  Company Number: ES-ACCORD-065895

PATIENT
  Age: 87 Year
  Sex: Male
  Weight: 87 kg

DRUGS (29)
  1. NEOTIGASON [Suspect]
     Active Substance: ACITRETIN
     Indication: ERYTHRODERMIC PSORIASIS
     Dosage: DOSAGE FORM: UNSPECIFIED, ALSO RECEIVED 50 MG,
     Dates: start: 20170728, end: 20170728
  2. FLUCONAZOLE. [Suspect]
     Active Substance: FLUCONAZOLE
     Indication: PRODUCT USED FOR UNKNOWN INDICATION
     Dosage: DOSAGE FORM: UNSPECIFIED, ON ALLOPURINOL FOR 6 YEARS
     Route: 042
     Dates: start: 20170810
  3. SIMVASTATIN. [Concomitant]
     Active Substance: SIMVASTATIN
     Route: 065
  4. CEFTRIAXONE. [Suspect]
     Active Substance: CEFTRIAXONE
     Indication: PRODUCT USED FOR UNKNOWN INDICATION
     Dosage: DOSAGE FORM: UNSPECIFIED, ON ALLOPURINOL FOR 6 YEARS
     Route: 030
     Dates: start: 20170801, end: 20170812
  5. STELARA [Suspect]
     Active Substance: USTEKINUMAB
     Indication: ERYTHRODERMIC PSORIASIS
     Route: 058
     Dates: start: 20170803, end: 20170803
  6. OMNIC OCAS [Concomitant]
     Active Substance: TAMSULOSIN HYDROCHLORIDE
  7. SALMETEROL [Concomitant]
     Active Substance: SALMETEROL
     Dosage: DOSAGE FORM: INHALATION, 1 INHALATION
     Route: 065
  8. ALLOPURINOL. [Suspect]
     Active Substance: ALLOPURINOL
     Indication: HYPERURICAEMIA
     Dosage: UNSPECIFIED, ON ALLOPURINOL FOR 6 YEARS,
     Route: 065
     Dates: start: 20110101
  9. BILAXTEN [Concomitant]
     Active Substance: BILASTINE
     Dosage: ALSO RECEIVED 40 MG
     Route: 065
     Dates: end: 20170726
  10. DIPROGENTA [Concomitant]
     Active Substance: BETAMETHASONE DIPROPIONATE\GENTAMICIN SULFATE
     Route: 061
  11. ACITRETIN. [Concomitant]
     Active Substance: ACITRETIN
     Dates: start: 20170728
  12. SEGURIL [Concomitant]
     Active Substance: FUROSEMIDE
     Dosage: DOSAGE FORM: UNSPECIFIED, 1.5 (60 MG/ DAY)
     Route: 065
     Dates: end: 20170802
  13. ENALAPRIL [Concomitant]
     Active Substance: ENALAPRIL
     Route: 065
  14. NOLOTIL (METAMIZOLE SODIUM) [Suspect]
     Active Substance: METAMIZOLE SODIUM
     Indication: PRODUCT USED FOR UNKNOWN INDICATION
     Dosage: DOSAGE FORM: UNSPECIFIED, ALSO RECEIVED WITH 1 DAY INTERVAL  FROM 01-AUG-2017
     Route: 042
     Dates: start: 201708
  15. JUNIPER OIL [Concomitant]
     Active Substance: HERBALS\JUNIPERUS COMMUNIS WHOLE
     Dosage: DOSAGE FORM: UNSPECIFIED, BATHROOMS WITH JUNIPER OIL ONCE A DAY FOR 20 MINUTES.
     Route: 065
  16. LORATADINE. [Concomitant]
     Active Substance: LORATADINE
     Dosage: ALSO RECEIVE 30 MG
     Route: 048
     Dates: start: 20170726
  17. PARACETAMOL [Concomitant]
     Active Substance: ACETAMINOPHEN
     Route: 065
  18. METAMIZOLE SODIUM [Concomitant]
     Active Substance: METAMIZOLE SODIUM
     Indication: PRODUCT USED FOR UNKNOWN INDICATION
     Dosage: DOSAGE FORM: UNSPECIFIED, TOTAL 1200 MG ONCE A DAY
     Route: 042
  19. MONOLITUM [Concomitant]
     Active Substance: LANSOPRAZOLE
     Dates: start: 20170401
  20. BRETARIS GENUAIR [Concomitant]
     Active Substance: ACLIDINIUM BROMIDE
     Dosage: DOSAGE FORM: INHALATION, 1 INHALATION
     Route: 055
  21. AZITHROMYCIN ANHYDROUS. [Concomitant]
     Active Substance: AZITHROMYCIN ANHYDROUS
     Dosage: DOSAGE FORM: UNSPECIFIED
     Route: 065
     Dates: end: 20170812
  22. CALCIPOTRIOL AND BETAMETHASONE [Concomitant]
     Active Substance: BETAMETHASONE\CALCIPOTRIENE
     Dosage: DOSAGE FORM: FOAM
     Route: 065
     Dates: start: 201704
  23. AUXINA A+E [Concomitant]
     Route: 048
     Dates: start: 201704, end: 20170726
  24. ZYLORIC [Concomitant]
     Active Substance: ALLOPURINOL
     Route: 065
  25. SPIRONOLACTONE. [Concomitant]
     Active Substance: SPIRONOLACTONE
     Indication: PRODUCT USED FOR UNKNOWN INDICATION
     Dosage: DOSAGE FORM: UNSPECIFIED, TOTAL 1200 MG ONCE A DAY
     Route: 065
     Dates: end: 20170802
  26. ACICLOVIR [Suspect]
     Active Substance: ACYCLOVIR
     Indication: ERYTHRODERMIC PSORIASIS
     Dosage: DOSAGE FORM: UNSPECIFIED, ALSO SUBCUTANEOUS 45 MG, ALSO 1200 MG
     Route: 042
     Dates: start: 20170810
  27. ALDACTONE [Concomitant]
     Active Substance: SPIRONOLACTONE
     Route: 065
     Dates: end: 20170802
  28. EUCERIN [Concomitant]
     Active Substance: ENSULIZOLE\EUCERIN\OCTINOXATE\OCTISALATE\TITANIUM DIOXIDE\ZINC OXIDE
     Route: 065
  29. DACORTIN [Concomitant]
     Active Substance: PREDNISONE
     Route: 065
     Dates: end: 20170801

REACTIONS (2)
  - Oral candidiasis [Recovering/Resolving]
  - Toxic epidermal necrolysis [Recovered/Resolved]

NARRATIVE: CASE EVENT DATE: 2017
